FAERS Safety Report 21176740 (Version 2)
Quarter: 2022Q3

REPORT INFORMATION
  Report Type: Spontaneous
  Country: US (occurrence: None)
  Receive Date: 20220805
  Receipt Date: 20220830
  Transmission Date: 20221027
  Serious: Yes (Other)
  Sender: FDA-Public Use
  Company Number: US-ROCHE-3150500

PATIENT
  Age: 19 Year
  Sex: Male
  Weight: 58.5 kg

DRUGS (3)
  1. EVRYSDI [Suspect]
     Active Substance: RISDIPLAM
     Indication: Spinal muscular atrophy
     Dosage: VIA G-TUBE
     Dates: start: 20210311
  2. BACLOFEN [Concomitant]
     Active Substance: BACLOFEN
     Dosage: 10MG IN MORNING AND AFTERNOON, 20MG IN EVENING
     Route: 048
  3. FAMOTIDINE [Concomitant]
     Active Substance: FAMOTIDINE

REACTIONS (1)
  - Sinus arrest [Not Recovered/Not Resolved]

NARRATIVE: CASE EVENT DATE: 20220701
